FAERS Safety Report 13652846 (Version 1)
Quarter: 2017Q2

REPORT INFORMATION
  Report Type: Spontaneous
  Country: US (occurrence: US)
  Receive Date: 20170614
  Receipt Date: 20170614
  Transmission Date: 20170830
  Serious: No
  Sender: FDA-Public Use
  Company Number: US-ROCHE-1509420

PATIENT
  Sex: Male

DRUGS (1)
  1. XELODA [Suspect]
     Active Substance: CAPECITABINE
     Indication: PRODUCT USED FOR UNKNOWN INDICATION
     Dosage: 2 WEEKS ON AND 1 WEEK OFF; 500MG AM AND 4PM
     Route: 048
     Dates: start: 20140825

REACTIONS (2)
  - Peripheral coldness [Unknown]
  - Drug dose omission [Unknown]
